FAERS Safety Report 15757507 (Version 1)
Quarter: 2018Q4

REPORT INFORMATION
  Report Type: Spontaneous
  Country: SE (occurrence: SE)
  Receive Date: 20181224
  Receipt Date: 20181224
  Transmission Date: 20190205
  Serious: Yes (Other)
  Sender: FDA-Public Use
  Company Number: SE-ELI_LILLY_AND_COMPANY-SE201802001550

PATIENT
  Sex: Female

DRUGS (1)
  1. CYMBALTA [Suspect]
     Active Substance: DULOXETINE HYDROCHLORIDE
     Indication: PRODUCT USED FOR UNKNOWN INDICATION
     Dosage: 60 MG, UNKNOWN
     Route: 065
     Dates: start: 2011

REACTIONS (6)
  - Asthenia [Unknown]
  - Fear [Unknown]
  - Maternal exposure during pregnancy [Not Recovered/Not Resolved]
  - Abortion [Unknown]
  - Crying [Unknown]
  - Suicidal ideation [Unknown]
